FAERS Safety Report 11099120 (Version 2)
Quarter: 2015Q2

REPORT INFORMATION
  Report Type: Spontaneous
  Country: AT (occurrence: None)
  Receive Date: 20150422
  Receipt Date: 20150603
  Transmission Date: 20150821
  Serious: Yes (Hospitalization)
  Sender: FDA-Public Use
  Company Number: GTI003089

PATIENT
  Age: 50 Year
  Sex: Female
  Weight: 100 kg

DRUGS (9)
  1. PROLASTIN [Suspect]
     Active Substance: .ALPHA.1-PROTEINASE INHIBITOR HUMAN
     Indication: ALPHA-1 ANTI-TRYPSIN DEFICIENCY
     Route: 042
     Dates: start: 20150207, end: 20150311
  2. MOXIFLOXACIN [Concomitant]
     Active Substance: MOXIFLOXACIN
  3. COMBIVENT [Concomitant]
     Active Substance: ALBUTEROL SULFATE\IPRATROPIUM BROMIDE
  4. AEROCORTIN [Concomitant]
  5. PANTOLOC [Concomitant]
     Active Substance: PANTOPRAZOLE SODIUM
  6. MYCOSTATIN [Concomitant]
     Active Substance: NYSTATIN
  7. SPIRIVA [Concomitant]
     Active Substance: TIOTROPIUM BROMIDE MONOHYDRATE
  8. DESLORATADINE. [Concomitant]
     Active Substance: DESLORATADINE
  9. BECLOMETASONE DIPROPIONATE W/FORMOTEROL FUMAR [Concomitant]
     Active Substance: BECLOMETHASONE\FORMOTEROL

REACTIONS (9)
  - Liver disorder [None]
  - Nausea [None]
  - Respiratory disorder [None]
  - Selective IgA immunodeficiency [None]
  - Tachycardia [None]
  - Dysgeusia [None]
  - Hypersensitivity [None]
  - Abdominal distension [None]
  - Hepatic enzyme increased [None]

NARRATIVE: CASE EVENT DATE: 201502
